FAERS Safety Report 22640039 (Version 1)
Quarter: 2023Q2

REPORT INFORMATION
  Report Type: Spontaneous
  Country: FR (occurrence: FR)
  Receive Date: 20230626
  Receipt Date: 20230626
  Transmission Date: 20230722
  Serious: Yes (Other)
  Sender: FDA-Public Use
  Company Number: None

PATIENT
  Age: 72 Year
  Sex: Female

DRUGS (3)
  1. AMOXICILLIN [Suspect]
     Active Substance: AMOXICILLIN
     Indication: Erysipelas
     Dosage: UNK
     Route: 048
     Dates: start: 20230505, end: 20230511
  2. SORIATANE [Suspect]
     Active Substance: ACITRETIN
     Indication: Cutaneous T-cell lymphoma
     Dosage: 20 MG, QD
     Route: 048
     Dates: start: 20230107, end: 20230501
  3. ACETAMINOPHEN\BELLADONNA LEAF\CAFFEINE\OPIUM [Suspect]
     Active Substance: ACETAMINOPHEN\BELLADONNA LEAF\CAFFEINE\OPIUM
     Indication: Pain
     Dosage: UNK
     Route: 048
     Dates: start: 20230505, end: 20230511

REACTIONS (1)
  - Hepatic cytolysis [Recovered/Resolved]

NARRATIVE: CASE EVENT DATE: 20230506
